FAERS Safety Report 7617044-9 (Version None)
Quarter: 2011Q3

REPORT INFORMATION
  Report Type: 
  Country: None (occurrence: None)
  Receive Date: 20110718
  Receipt Date: 20091122
  Transmission Date: 20111222
  Serious: Yes (Death, Hospitalization, Other)
  Sender: FDA-Public Use
  Company Number: US-BAYER-200940091NA

PATIENT
  Age: 64 Year
  Sex: Female
  Weight: 64.58 kg

DRUGS (26)
  1. DARVOCET [Concomitant]
     Route: 048
  2. HEPARIN [Concomitant]
     Dosage: UNK
     Route: 042
     Dates: start: 20070817, end: 20070817
  3. TRASYLOL [Suspect]
     Dosage: 50 ML/HR
     Route: 042
     Dates: start: 20070817, end: 20070817
  4. CYMBALTA [Concomitant]
     Dosage: UNK UNK, QD
     Route: 048
  5. PERCOCET [Concomitant]
     Dosage: UNK UNK, QD
     Route: 048
  6. NAPROXEN [Concomitant]
     Dosage: UNK UNK, QD
     Route: 048
  7. ALLOPURINOL [Concomitant]
     Dosage: 100 MG, BID
     Route: 048
  8. CEFUROXIME [Concomitant]
     Dosage: 3 G, UNK
     Route: 042
  9. TRASYLOL [Suspect]
     Indication: ARTERECTOMY
     Dosage: 200 ML
     Route: 042
     Dates: start: 20070817, end: 20070817
  10. SEROQUEL [Concomitant]
     Route: 048
  11. VERSED [Concomitant]
     Dosage: UNK
     Route: 042
     Dates: start: 20070817, end: 20070817
  12. RITALIN [Concomitant]
     Dosage: UNK UNK, QD
     Route: 048
  13. NEURONTIN [Concomitant]
     Route: 048
  14. EPINEPHRINE [Concomitant]
     Dosage: UNK
     Route: 042
     Dates: start: 20070817, end: 20070817
  15. SYNTHROID [Concomitant]
     Route: 048
  16. LISINOPRIL [Concomitant]
  17. ALBUTEROL SULFATE AUTOHALER [Concomitant]
  18. TRASYLOL [Suspect]
     Indication: PRODUCT USED FOR UNKNOWN INDICATION
     Dosage: 1 ML
     Route: 042
     Dates: start: 20070817, end: 20070817
  19. TRASYLOL [Suspect]
     Indication: INTRA-AORTIC BALLOON PLACEMENT
     Dosage: 200 CC PUMP PRIME
     Route: 042
     Dates: start: 20070817, end: 20070817
  20. COLCHICINE [Concomitant]
     Route: 048
  21. PAVULON [Concomitant]
     Dosage: UNK
     Route: 042
     Dates: start: 20070817, end: 20070817
  22. FENTANYL-100 [Concomitant]
     Dosage: UNK
     Route: 042
     Dates: start: 20070817, end: 20070817
  23. VASOPRESSIN [Concomitant]
     Dosage: UNK
     Route: 042
     Dates: start: 20070817, end: 20070817
  24. PROTAMINE SULFATE [Concomitant]
     Dosage: UNK
     Route: 042
     Dates: start: 20070817, end: 20070817
  25. TRICOR [Concomitant]
  26. ETOMIDATE [Concomitant]
     Dosage: UNK
     Route: 042
     Dates: start: 20070817, end: 20070817

REACTIONS (14)
  - RENAL INJURY [None]
  - DEATH [None]
  - EMOTIONAL DISTRESS [None]
  - STRESS [None]
  - INJURY [None]
  - RENAL IMPAIRMENT [None]
  - ANXIETY [None]
  - MULTI-ORGAN FAILURE [None]
  - RENAL FAILURE [None]
  - UNEVALUABLE EVENT [None]
  - PAIN [None]
  - ANHEDONIA [None]
  - FEAR [None]
  - CEREBROVASCULAR ACCIDENT [None]
